FAERS Safety Report 4716055-0 (Version None)
Quarter: 2005Q3

REPORT INFORMATION
  Report Type: 
  Country: None (occurrence: None)
  Receive Date: 20050718
  Receipt Date: 20050708
  Transmission Date: 20060218
  Serious: Yes (Death)
  Sender: FDA-Public Use
  Company Number: 200511835EU

PATIENT
  Age: 40 Year
  Sex: Female
  Weight: 75 kg

DRUGS (5)
  1. CLEXANE [Suspect]
     Indication: THROMBOSIS PROPHYLAXIS
     Route: 058
     Dates: start: 20050628, end: 20050703
  2. CEFUROXIMUM [Concomitant]
     Indication: PROPHYLAXIS
     Route: 042
     Dates: start: 20050628, end: 20050629
  3. KETOPROFEN [Concomitant]
     Indication: ANALGESIC EFFECT
     Route: 030
     Dates: start: 20050628, end: 20050629
  4. PIAFEN [Concomitant]
     Indication: ANALGESIC EFFECT
     Dosage: DOSE: 3 VIALS
     Route: 030
     Dates: start: 20050628, end: 20050629
  5. DIAZEPAMUM [Concomitant]
     Indication: SEDATION
     Route: 048
     Dates: start: 20050628

REACTIONS (7)
  - CARDIO-RESPIRATORY ARREST [None]
  - HYPERHIDROSIS [None]
  - PALLOR [None]
  - POST PROCEDURAL COMPLICATION [None]
  - POST PROCEDURAL PULMONARY EMBOLISM [None]
  - PULMONARY EMBOLISM [None]
  - SHOCK [None]
